FAERS Safety Report 7774555-3 (Version None)
Quarter: 2011Q3

REPORT INFORMATION
  Report Type: 
  Country: None (occurrence: None)
  Receive Date: 20110923
  Receipt Date: 20110920
  Transmission Date: 20111222
  Serious: Yes (Death, Hospitalization)
  Sender: FDA-Public Use
  Company Number: GB-ROCHE-738985

PATIENT
  Age: 49 Year
  Sex: Male

DRUGS (5)
  1. DEXAMETHASONE [Suspect]
     Indication: IMMUNOSUPPRESSION
     Route: 065
  2. COTRIM [Suspect]
     Indication: IMMUNOSUPPRESSION
     Route: 065
     Dates: start: 20030101
  3. MYCOPHENOLATE MOFETIL [Suspect]
     Indication: IMMUNOSUPPRESSION
     Route: 065
     Dates: start: 20040101
  4. PREDNISOLONE [Suspect]
     Indication: IMMUNOSUPPRESSION
     Route: 065
     Dates: start: 20030101
  5. TACROLIMUS [Suspect]
     Indication: IMMUNOSUPPRESSION
     Route: 065
     Dates: start: 20030101, end: 20080101

REACTIONS (7)
  - PNEUMONIA ASPIRATION [None]
  - DECREASED APPETITE [None]
  - HEMIPARESIS [None]
  - UPPER MOTOR NEURONE LESION [None]
  - GRAND MAL CONVULSION [None]
  - LETHARGY [None]
  - TOXOPLASMOSIS [None]
